FAERS Safety Report 18508476 (Version 1)
Quarter: 2020Q4

REPORT INFORMATION
  Report Type: Other
  Country: IL (occurrence: IL)
  Receive Date: 20201116
  Receipt Date: 20201116
  Transmission Date: 20210114
  Serious: Yes (Other)
  Sender: FDA-Public Use
  Company Number: IL-ROCHE-2714837

PATIENT
  Age: 64 Year
  Sex: Male

DRUGS (6)
  1. ETOPOSIDE. [Concomitant]
     Active Substance: ETOPOSIDE
  2. IFOSFAMIDE. [Concomitant]
     Active Substance: IFOSFAMIDE
  3. METHOTREXATE. [Concomitant]
     Active Substance: METHOTREXATE
  4. PROCARBAZINE [Concomitant]
     Active Substance: PROCARBAZINE
  5. RITUXIMAB. [Suspect]
     Active Substance: RITUXIMAB
     Indication: CENTRAL NERVOUS SYSTEM LYMPHOMA
     Route: 065
  6. CYTARABINE. [Concomitant]
     Active Substance: CYTARABINE

REACTIONS (3)
  - Seizure [Unknown]
  - Confusional state [Unknown]
  - Agitation [Unknown]
